FAERS Safety Report 20984350 (Version 1)
Quarter: 2022Q2

REPORT INFORMATION
  Report Type: Report from Study
  Country: US (occurrence: US)
  Receive Date: 20220621
  Receipt Date: 20220621
  Transmission Date: 20220721
  Serious: Yes (Other)
  Sender: FDA-Public Use
  Company Number: US-BRISTOL-MYERS SQUIBB COMPANY-2022-053853

PATIENT
  Age: 65 Year
  Sex: Female
  Weight: 81.64 kg

DRUGS (3)
  1. REVLIMID [Suspect]
     Active Substance: LENALIDOMIDE
     Indication: Plasma cell myeloma in remission
     Dosage: FREQUENCY : DAILY
     Route: 048
     Dates: start: 20171215
  2. SPIRIVA [Suspect]
     Active Substance: TIOTROPIUM BROMIDE MONOHYDRATE
     Indication: Product used for unknown indication
     Route: 065
  3. ACRIVASTINE [Concomitant]
     Active Substance: ACRIVASTINE
     Indication: Sleep disorder
     Route: 065

REACTIONS (5)
  - Back pain [Unknown]
  - Bone pain [Unknown]
  - Hypersensitivity [Unknown]
  - Dysphonia [Unknown]
  - Glaucoma [Unknown]
